FAERS Safety Report 8902806 (Version 1)
Quarter: 2012Q4

REPORT INFORMATION
  Report Type: 
  Country: US (occurrence: US)
  Receive Date: 20121112
  Receipt Date: 20121112
  Transmission Date: 20130627
  Serious: Yes (Other)
  Sender: FDA-Public Use
  Company Number: US-SHIRE-ALL1-2012-05457

PATIENT
  Sex: Female
  Weight: 63 kg

DRUGS (2)
  1. FOSRENOL [Suspect]
     Indication: HYPERPHOSPHATAEMIA
     Dosage: UNK, Unknown
     Route: 048
     Dates: end: 2012
  2. FOSRENOL [Suspect]
     Dosage: UNK (3000-4000 mg), 3x/day:tid
     Route: 048
     Dates: start: 2012

REACTIONS (3)
  - Gangrene [Recovered/Resolved]
  - Blood phosphorus increased [Not Recovered/Not Resolved]
  - Drug prescribing error [Not Recovered/Not Resolved]
